FAERS Safety Report 24948498 (Version 1)
Quarter: 2025Q1

REPORT INFORMATION
  Report Type: Spontaneous
  Country: JP (occurrence: JP)
  Receive Date: 20250210
  Receipt Date: 20250210
  Transmission Date: 20250409
  Serious: Yes (Death, Hospitalization, Other)
  Sender: RISING PHARMACEUTICALS
  Company Number: JP-RISINGPHARMA-JP-2025RISLIT00069

PATIENT
  Age: 77 Year
  Sex: Female

DRUGS (1)
  1. PREDNISOLONE [Suspect]
     Active Substance: PREDNISOLONE
     Indication: Neuromyelitis optica spectrum disorder
     Route: 065

REACTIONS (4)
  - Septic shock [Fatal]
  - Spinal compression fracture [Unknown]
  - Osteoporosis [Unknown]
  - Product use in unapproved indication [Unknown]
